FAERS Safety Report 10359176 (Version 1)
Quarter: 2014Q3

REPORT INFORMATION
  Report Type: Report from Study
  Country: IN (occurrence: IN)
  Receive Date: 20140804
  Receipt Date: 20140804
  Transmission Date: 20150326
  Serious: Yes (Hospitalization)
  Sender: FDA-Public Use
  Company Number: PHHY2014IN094172

PATIENT
  Age: 68 Year
  Sex: Male

DRUGS (1)
  1. ACLASTA [Suspect]
     Active Substance: ZOLEDRONIC ACID
     Indication: OSTEOPOROSIS
     Dosage: 5 MG/100ML PER YEAR, UNK
     Route: 042
     Dates: start: 20140724

REACTIONS (3)
  - Femur fracture [Unknown]
  - Malaise [Unknown]
  - Fall [Unknown]
